FAERS Safety Report 5775055-2 (Version None)
Quarter: 2008Q2

REPORT INFORMATION
  Report Type: 
  Country: None (occurrence: None)
  Receive Date: 20080617
  Receipt Date: 20080611
  Transmission Date: 20081010
  Serious: Yes (Other)
  Sender: FDA-Public Use
  Company Number: GB-ROCHE-559815

PATIENT
  Sex: Female
  Weight: 93 kg

DRUGS (1)
  1. ORLISTAT [Suspect]
     Indication: OBESITY
     Route: 048
     Dates: start: 20071008, end: 20080301

REACTIONS (2)
  - BREAST CANCER [None]
  - DYSPEPSIA [None]
